FAERS Safety Report 7814514-5 (Version None)
Quarter: 2011Q4

REPORT INFORMATION
  Report Type: 
  Country: None (occurrence: None)
  Receive Date: 20111014
  Receipt Date: 20111004
  Transmission Date: 20120403
  Serious: Yes (Hospitalization)
  Sender: FDA-Public Use
  Company Number: GB-US-EMD SERONO, INC.-7087185

PATIENT

DRUGS (4)
  1. VESICARE [Suspect]
     Dates: start: 20100401, end: 20110601
  2. AMITRIPTYLINE HCL [Concomitant]
     Dates: start: 20100401, end: 20110901
  3. REBIF [Suspect]
     Indication: MULTIPLE SCLEROSIS
     Dates: end: 20110601
  4. AMANTADINE HCL [Concomitant]
     Dates: end: 20110901

REACTIONS (4)
  - COGNITIVE DISORDER [None]
  - MENTAL DISORDER [None]
  - DELIRIUM [None]
  - EXPRESSIVE LANGUAGE DISORDER [None]
